FAERS Safety Report 15075512 (Version 1)
Quarter: 2018Q2

REPORT INFORMATION
  Report Type: Spontaneous
  Country: US (occurrence: US)
  Receive Date: 20180627
  Receipt Date: 20180627
  Transmission Date: 20180711
  Serious: Yes (Other)
  Sender: FDA-Public Use
  Company Number: US-SAOL THERAPEUTICS-2018SAO00614

PATIENT
  Age: 48 Year
  Sex: Female
  Weight: 86.17 kg

DRUGS (2)
  1. BACLOFEN. [Suspect]
     Active Substance: BACLOFEN
     Indication: MUSCLE SPASTICITY
     Dosage: 60 ?G, \DAY
     Route: 037
  2. MORPHINE [Suspect]
     Active Substance: MORPHINE
     Dosage: 2.66 MG, \DAY
     Route: 037

REACTIONS (3)
  - Muscle spasticity [Unknown]
  - Pain [Unknown]
  - Device issue [Unknown]

NARRATIVE: CASE EVENT DATE: 201711
